FAERS Safety Report 8471660-3 (Version None)
Quarter: 2012Q2

REPORT INFORMATION
  Report Type: 
  Country: None (occurrence: None)
  Receive Date: 20120323
  Receipt Date: 20111125
  Transmission Date: 20120825
  Serious: Yes (Hospitalization, Other)
  Sender: FDA-Public Use
  Company Number: 163-21880-11100232

PATIENT
  Age: 74 Year
  Sex: Male
  Weight: 64.8644 kg

DRUGS (2)
  1. REVLIMID [Suspect]
     Indication: MULTIPLE MYELOMA
     Dosage: 25 MG, DAILY X 21/7, PO, 25 MG, DAILY X 21/7, PO
     Route: 048
     Dates: start: 20110903, end: 20110101
  2. REVLIMID [Suspect]
     Indication: MULTIPLE MYELOMA
     Dosage: 25 MG, DAILY X 21/7, PO, 25 MG, DAILY X 21/7, PO
     Route: 048
     Dates: start: 20110927

REACTIONS (4)
  - DRUG INEFFECTIVE [None]
  - RENAL FAILURE ACUTE [None]
  - THROMBOCYTOPENIA [None]
  - EPISTAXIS [None]
